FAERS Safety Report 21396597 (Version 1)
Quarter: 2022Q3

REPORT INFORMATION
  Report Type: Spontaneous
  Country: US (occurrence: US)
  Receive Date: 20220930
  Receipt Date: 20220930
  Transmission Date: 20221026
  Serious: Yes (Hospitalization)
  Sender: FDA-Public Use
  Company Number: US-UCBSA-2022053837

PATIENT
  Age: 78 Year
  Sex: Female

DRUGS (1)
  1. NEUPRO [Suspect]
     Active Substance: ROTIGOTINE
     Indication: Restless legs syndrome
     Dosage: 4MG- 1 PATCH DAILY
     Route: 062

REACTIONS (5)
  - Fall [Not Recovered/Not Resolved]
  - Concussion [Not Recovered/Not Resolved]
  - Inability to afford medication [Unknown]
  - Therapy interrupted [Unknown]
  - Overdose [Unknown]

NARRATIVE: CASE EVENT DATE: 20220920
